FAERS Safety Report 17584247 (Version 1)
Quarter: 2020Q1

REPORT INFORMATION
  Report Type: Spontaneous
  Country: JP (occurrence: JP)
  Receive Date: 20200326
  Receipt Date: 20200326
  Transmission Date: 20200409
  Serious: Yes (Other)
  Sender: FDA-Public Use
  Company Number: JP-MYLANLABS-2020M1032329

PATIENT
  Age: 79 Year
  Sex: Male

DRUGS (3)
  1. PACLITAXEL. [Suspect]
     Active Substance: PACLITAXEL
     Indication: LUNG SQUAMOUS CELL CARCINOMA STAGE IV
     Dosage: AS PART OF THE PEMBROLIZUMAB COMBINATION THERAPY, COMPRISING CARBOPLATIN AND PACLITAXEL [NAB-PACLITA
     Route: 065
  2. CARBOPLATIN. [Suspect]
     Active Substance: CARBOPLATIN
     Indication: LUNG SQUAMOUS CELL CARCINOMA STAGE IV
     Dosage: AS PART OF THE PEMBROLIZUMAB COMBINATION THERAPY, COMPRISING CARBOPLATIN AND PACLITAXEL [NAB-PACLITA
     Route: 065
  3. PEMBROLIZUMAB. [Suspect]
     Active Substance: PEMBROLIZUMAB
     Indication: LUNG SQUAMOUS CELL CARCINOMA STAGE IV
     Dosage: AS PART OF THE PEMBROLIZUMAB COMBINATION THERAPY, COMPRISING CARBOPLATIN AND PACLITAXEL [NAB-PACLITA
     Route: 065

REACTIONS (2)
  - Acute generalised exanthematous pustulosis [Recovering/Resolving]
  - Neutropenia [Unknown]
